FAERS Safety Report 13479368 (Version 1)
Quarter: 2017Q2

REPORT INFORMATION
  Report Type: Report from Study
  Country: CA (occurrence: CA)
  Receive Date: 20170425
  Receipt Date: 20170425
  Transmission Date: 20170830
  Serious: Yes (Other)
  Sender: FDA-Public Use
  Company Number: CA-JNJFOC-20170420367

PATIENT
  Age: 30 Year
  Sex: Female
  Weight: 109 kg

DRUGS (1)
  1. STELARA [Suspect]
     Active Substance: USTEKINUMAB
     Indication: CROHN^S DISEASE
     Route: 058
     Dates: start: 20150529

REACTIONS (3)
  - Off label use [Unknown]
  - Lung infection [Unknown]
  - Product use issue [Unknown]

NARRATIVE: CASE EVENT DATE: 20150529
